FAERS Safety Report 8301984-1 (Version None)
Quarter: 2012Q2

REPORT INFORMATION
  Report Type: 
  Country: None (occurrence: None)
  Receive Date: 20120420
  Receipt Date: 20120412
  Transmission Date: 20120825
  Serious: No
  Sender: FDA-Public Use
  Company Number: US-BAYER-2012-038172

PATIENT

DRUGS (3)
  1. ACETAMINOPHEN [Concomitant]
     Indication: MIGRAINE
  2. ALEVE (CAPLET) [Suspect]
     Indication: MIGRAINE
     Route: 048
  3. EXCEDRIN [ACETYLSALICYLIC ACID,CAFFEINE,PARACETAMOL] [Concomitant]
     Indication: MIGRAINE

REACTIONS (1)
  - MIGRAINE [None]
